FAERS Safety Report 7785086-9 (Version None)
Quarter: 2011Q3

REPORT INFORMATION
  Report Type: 
  Country: None (occurrence: None)
  Receive Date: 20110929
  Receipt Date: 20110919
  Transmission Date: 20111222
  Serious: No
  Sender: FDA-Public Use
  Company Number: US-BIOGENIDEC-2010BI015636

PATIENT
  Age: 52 Year
  Sex: Male

DRUGS (2)
  1. TYSABRI [Suspect]
     Indication: MULTIPLE SCLEROSIS
     Route: 042
     Dates: start: 20070320
  2. TYSABRI [Suspect]
     Route: 042
     Dates: start: 20030201, end: 20050201

REACTIONS (4)
  - CORNEAL ABRASION [None]
  - EYELID FUNCTION DISORDER [None]
  - VERTIGO [None]
  - FATIGUE [None]
